FAERS Safety Report 23466774 (Version 2)
Quarter: 2024Q1

REPORT INFORMATION
  Report Type: Spontaneous
  Country: US (occurrence: US)
  Receive Date: 20240201
  Receipt Date: 20240214
  Transmission Date: 20240410
  Serious: No
  Sender: FDA-Public Use
  Company Number: US-MYLANLABS-2024M1001336

PATIENT
  Sex: Male
  Weight: 86.18 kg

DRUGS (2)
  1. NITROGLYCERIN TRANSDERMAL DELIVERY SYSTEM [Suspect]
     Active Substance: NITROGLYCERIN
     Indication: Angina pectoris
     Dosage: UNK, QD (1 PATCH PER DAY)
     Route: 062
  2. RYBELSUS [Concomitant]
     Active Substance: SEMAGLUTIDE
     Indication: Diabetes mellitus
     Dosage: 14 MILLIGRAM, QD
     Route: 065

REACTIONS (3)
  - Application site erythema [Unknown]
  - Application site rash [Unknown]
  - Application site pain [Unknown]
